FAERS Safety Report 7004873-8 (Version None)
Quarter: 2010Q3

REPORT INFORMATION
  Report Type: 
  Country: None (occurrence: None)
  Receive Date: 20100921
  Receipt Date: 20100819
  Transmission Date: 20110219
  Serious: No
  Sender: FDA-Public Use
  Company Number: US-BAYER-201019427BCC

PATIENT
  Sex: Female

DRUGS (1)
  1. FINACEA [Suspect]
     Indication: SKIN DISCOLOURATION
     Route: 061
     Dates: start: 20100701

REACTIONS (2)
  - PAIN OF SKIN [None]
  - SKIN BURNING SENSATION [None]
